FAERS Safety Report 23933415 (Version 1)
Quarter: 2024Q2

REPORT INFORMATION
  Report Type: Spontaneous
  Country: US (occurrence: US)
  Receive Date: 20240603
  Receipt Date: 20240603
  Transmission Date: 20240716
  Serious: No
  Sender: FDA-Public Use
  Company Number: US-TARO PHARMACEUTICALS USA INC.-2023TAR00683

PATIENT

DRUGS (1)
  1. CLOTRIMAZOLE [Suspect]
     Active Substance: CLOTRIMAZOLE
     Indication: Vulvovaginal mycotic infection
     Dosage: 1 APPLICATORFUL, OD, 1X PER DAY AT BEDTIME FOR 3 DAYS IN A ROW
     Route: 067

REACTIONS (1)
  - Bloody discharge [Not Recovered/Not Resolved]

NARRATIVE: CASE EVENT DATE: 20230614
